FAERS Safety Report 16709647 (Version 1)
Quarter: 2019Q3

REPORT INFORMATION
  Report Type: Spontaneous
  Country: US (occurrence: US)
  Receive Date: 20190701
  Receipt Date: 20190701
  Transmission Date: 20191004
  Serious: No
  Sender: FDA-Public Use
  Company Number: None

PATIENT
  Age: 59 Year
  Sex: Female

DRUGS (4)
  1. AFINITOR [Suspect]
     Active Substance: EVEROLIMUS
     Dates: start: 20180608
  2. PROGLYCEM [Concomitant]
     Active Substance: DIAZOXIDE
  3. DEXXAMETHASONE [Concomitant]
  4. LEVOTHYROXINE. [Concomitant]
     Active Substance: LEVOTHYROXINE

REACTIONS (4)
  - Therapeutic embolisation [None]
  - Vomiting [None]
  - Blood glucose increased [None]
  - Therapy cessation [None]
